FAERS Safety Report 13510362 (Version 3)
Quarter: 2018Q4

REPORT INFORMATION
  Report Type: Spontaneous
  Country: FI (occurrence: FI)
  Receive Date: 20170503
  Receipt Date: 20181023
  Transmission Date: 20190204
  Serious: Yes (Disabling, Other)
  Sender: FDA-Public Use
  Company Number: FI-OTSUKA-2017_002966

PATIENT
  Age: 44 Year
  Sex: Female

DRUGS (4)
  1. THYROXINE [Concomitant]
     Active Substance: LEVOTHYROXINE
     Indication: PRODUCT USED FOR UNKNOWN INDICATION
     Dosage: UNK
     Route: 065
  2. ABILIFY MAINTENA [Suspect]
     Active Substance: ARIPIPRAZOLE
     Indication: PARANOIA
     Dosage: 400 MG, (EVERY 3 WEEKS)
     Route: 030
     Dates: start: 20170213
  3. LORATADINE. [Concomitant]
     Active Substance: LORATADINE
     Indication: PRODUCT USED FOR UNKNOWN INDICATION
     Dosage: UNK
     Route: 065
  4. ABILIFY MAINTENA [Suspect]
     Active Substance: ARIPIPRAZOLE
     Indication: BIPOLAR DISORDER
     Dosage: 400 MG, (EVERY 4 WEEKS)
     Route: 030
     Dates: start: 20161108, end: 20170213

REACTIONS (6)
  - Mania [Recovered/Resolved]
  - Inappropriate schedule of product administration [Unknown]
  - Off label use [Unknown]
  - Hypomania [Recovered/Resolved]
  - Drug ineffective [Unknown]
  - Gambling disorder [Not Recovered/Not Resolved]

NARRATIVE: CASE EVENT DATE: 20161108
